FAERS Safety Report 21926000 (Version 3)
Quarter: 2024Q2

REPORT INFORMATION
  Report Type: Report from Study
  Country: CA (occurrence: CA)
  Receive Date: 20230130
  Receipt Date: 20240417
  Transmission Date: 20240716
  Serious: Yes (Other)
  Sender: FDA-Public Use
  Company Number: CA-TEVA-2023-CA-2849295

PATIENT
  Age: 83 Year
  Sex: Male

DRUGS (1)
  1. OCTREOTIDE [Suspect]
     Active Substance: OCTREOTIDE\OCTREOTIDE ACETATE
     Indication: Carcinoid tumour
     Route: 030
     Dates: start: 20220308, end: 202302

REACTIONS (7)
  - Haemorrhage [Unknown]
  - Ecchymosis [Unknown]
  - Muscle disorder [Unknown]
  - Myalgia [Unknown]
  - Haematoma [Unknown]
  - Mass [Unknown]
  - Pain [Unknown]

NARRATIVE: CASE EVENT DATE: 20230101
